FAERS Safety Report 12982173 (Version 1)
Quarter: 2016Q4

REPORT INFORMATION
  Report Type: Spontaneous
  Country: US (occurrence: US)
  Receive Date: 20161129
  Receipt Date: 20161129
  Transmission Date: 20170207
  Serious: No
  Sender: FDA-Public Use
  Company Number: US-PFIZER INC-2016543670

PATIENT
  Age: 57 Year
  Sex: Female

DRUGS (2)
  1. EXEMESTANE. [Concomitant]
     Active Substance: EXEMESTANE
     Dosage: UNK
  2. IBRANCE [Suspect]
     Active Substance: PALBOCICLIB
     Indication: NEOPLASM MALIGNANT
     Dosage: 125 MG, CYCLIC,  (ONCE DAILY FOR 21DAYS FOLLOWED BY A 7DAY PERIOD OF REST TO COMPLETE A28DAY TREATM)
     Route: 048
     Dates: start: 201611

REACTIONS (3)
  - Blood count abnormal [Unknown]
  - Product use issue [Unknown]
  - Fatigue [Unknown]

NARRATIVE: CASE EVENT DATE: 201611
